FAERS Safety Report 4543400-1 (Version None)
Quarter: 2005Q1

REPORT INFORMATION
  Report Type: 
  Country: None (occurrence: None)
  Receive Date: 20050103
  Receipt Date: 20011025
  Transmission Date: 20050727
  Serious: Yes (Hospitalization)
  Sender: FDA-Public Use
  Company Number: US-MERCK-01104514

PATIENT
  Age: 68 Year
  Sex: Male
  Weight: 64 kg

DRUGS (11)
  1. VIOXX [Suspect]
     Indication: ARTHRITIS
     Route: 048
     Dates: start: 20001201, end: 20010101
  2. VIOXX [Suspect]
     Route: 048
     Dates: start: 19990824, end: 20001201
  3. AZULFIDINE [Concomitant]
     Indication: PSORIASIS
     Route: 065
     Dates: end: 19991122
  4. PRILOSEC [Concomitant]
     Route: 065
  5. ENBREL [Concomitant]
     Indication: ARTHRITIS
     Route: 065
     Dates: start: 20010101, end: 20010101
  6. ENBREL [Concomitant]
     Indication: PSORIASIS
     Route: 065
     Dates: start: 20010101, end: 20010101
  7. PREDNISONE [Concomitant]
     Route: 065
  8. PROZAC [Concomitant]
     Indication: DEPRESSION
     Route: 065
  9. PROZAC [Concomitant]
     Route: 065
  10. PROZAC [Concomitant]
     Route: 065
  11. TRAZODONE HYDROCHLORIDE [Concomitant]
     Indication: INSOMNIA
     Route: 065

REACTIONS (58)
  - ABDOMINAL DISTENSION [None]
  - ABDOMINAL PAIN UPPER [None]
  - AFFECT LABILITY [None]
  - ANAEMIA [None]
  - ANXIETY [None]
  - ARTHRITIS [None]
  - ATHEROSCLEROSIS [None]
  - AZOTAEMIA [None]
  - BACK PAIN [None]
  - BLADDER OBSTRUCTION [None]
  - BLOOD CHOLESTEROL INCREASED [None]
  - BLOOD CREATINE PHOSPHOKINASE MB INCREASED [None]
  - BLOOD PRESSURE INADEQUATELY CONTROLLED [None]
  - CARDIOVASCULAR DISORDER [None]
  - CELLULITIS [None]
  - CEREBRAL ARTERY STENOSIS [None]
  - CEREBRAL INFARCTION [None]
  - CEREBROVASCULAR ACCIDENT [None]
  - CHEST PAIN [None]
  - CHEST X-RAY ABNORMAL [None]
  - CONDITION AGGRAVATED [None]
  - CORONARY ARTERY RESTENOSIS [None]
  - CORONARY ARTERY STENOSIS [None]
  - COUGH [None]
  - DEPRESSION POSTOPERATIVE [None]
  - DIARRHOEA [None]
  - DIZZINESS POSTURAL [None]
  - ERECTILE DYSFUNCTION [None]
  - FEELING ABNORMAL [None]
  - FLATULENCE [None]
  - FLUID RETENTION [None]
  - GASTRITIS [None]
  - GASTROINTESTINAL PAIN [None]
  - GASTROOESOPHAGEAL REFLUX DISEASE [None]
  - GROIN PAIN [None]
  - GYNAECOMASTIA [None]
  - HIATUS HERNIA [None]
  - HYDRONEPHROSIS [None]
  - HYPERCOAGULATION [None]
  - HYPERTENSION [None]
  - HYPOKALAEMIA [None]
  - INSOMNIA [None]
  - INTERNATIONAL NORMALISED RATIO INCREASED [None]
  - LIVER DISORDER [None]
  - MUSCLE SPASMS [None]
  - MYOCARDIAL INFARCTION [None]
  - NEPHROLITHIASIS [None]
  - OEDEMA [None]
  - POST PROCEDURAL CELLULITIS [None]
  - POST PROCEDURAL COMPLICATION [None]
  - PSORIATIC ARTHROPATHY [None]
  - RENAL FAILURE [None]
  - RHINITIS ALLERGIC [None]
  - RHINITIS SEASONAL [None]
  - SINUS BRADYCARDIA [None]
  - SLEEP APNOEA SYNDROME [None]
  - STRESS [None]
  - THERAPEUTIC RESPONSE DECREASED [None]
